FAERS Safety Report 7046717-4 (Version None)
Quarter: 2010Q4

REPORT INFORMATION
  Report Type: 
  Country: None (occurrence: None)
  Receive Date: 20101015
  Receipt Date: 20101005
  Transmission Date: 20110411
  Serious: Yes (Other)
  Sender: FDA-Public Use
  Company Number: JP-JNJFOC-20100606549

PATIENT
  Sex: Female
  Weight: 62 kg

DRUGS (8)
  1. DOXORUBICIN HYDROCHLORIDE [Suspect]
     Indication: OVARIAN CANCER RECURRENT
     Dosage: CYCLE 2
     Route: 042
  2. DOXORUBICIN HYDROCHLORIDE [Suspect]
     Dosage: CYCLE 1
     Route: 042
  3. DECADRON [Concomitant]
     Indication: PROPHYLAXIS
     Route: 048
  4. MUCOSTA [Concomitant]
     Indication: PROPHYLAXIS
     Route: 048
  5. MAGMITT [Concomitant]
     Indication: PROPHYLAXIS
     Route: 048
  6. LOBU [Concomitant]
     Indication: PRODUCT USED FOR UNKNOWN INDICATION
     Route: 048
  7. NAIXAN [Concomitant]
     Indication: PRODUCT USED FOR UNKNOWN INDICATION
     Route: 048
  8. NOVAMIN [Concomitant]
     Indication: OVARIAN CANCER RECURRENT
     Route: 048

REACTIONS (3)
  - ANAEMIA [None]
  - NEUTROPHIL COUNT DECREASED [None]
  - RED BLOOD CELL COUNT DECREASED [None]
